FAERS Safety Report 6153975-7 (Version None)
Quarter: 2009Q2

REPORT INFORMATION
  Report Type: 
  Country: None (occurrence: None)
  Receive Date: 20090414
  Receipt Date: 20090408
  Transmission Date: 20091009
  Serious: Yes (Other)
  Sender: FDA-Public Use
  Company Number: GB-ABBOTT-09P-167-0567313-00

PATIENT
  Age: 49 Year
  Sex: Male
  Weight: 172 kg

DRUGS (1)
  1. REDUCTIL 10MG [Suspect]
     Indication: OBESITY
     Dates: start: 20090217, end: 20090313

REACTIONS (3)
  - DYSPNOEA [None]
  - TACHYCARDIA [None]
  - WHEEZING [None]
